FAERS Safety Report 5441012-9 (Version None)
Quarter: 2007Q3

REPORT INFORMATION
  Report Type: 
  Country: None (occurrence: None)
  Receive Date: 20070831
  Receipt Date: 20070823
  Transmission Date: 20080115
  Serious: Yes (Hospitalization, Disabling, Other)
  Sender: FDA-Public Use
  Company Number: DE-PFIZER INC-2007030591

PATIENT
  Sex: Female
  Weight: 105 kg

DRUGS (1)
  1. SUTENT [Suspect]
     Indication: METASTATIC RENAL CELL CARCINOMA
     Route: 048
     Dates: start: 20070315, end: 20070403

REACTIONS (5)
  - HAEMATURIA [None]
  - HAEMORRHAGE [None]
  - RENAL DISORDER [None]
  - RENAL FAILURE [None]
  - THROMBOCYTOPENIA [None]
